FAERS Safety Report 4503028-6 (Version None)
Quarter: 2004Q4

REPORT INFORMATION
  Report Type: 
  Country: None (occurrence: None)
  Receive Date: 20041112
  Receipt Date: 20041109
  Transmission Date: 20050328
  Serious: Yes (Life-Threatening, Hospitalization)
  Sender: FDA-Public Use
  Company Number: 403725410/PHRM2004FR02894

PATIENT
  Age: 62 Year
  Sex: Female
  Weight: 58 kg

DRUGS (1)
  1. AK-FLUOR INJECTION, AKORN [Suspect]
     Indication: ANGIOGRAM RETINA
     Dosage: 5 ML, ONCE/SINGLE, IV
     Route: 042
     Dates: start: 20040910

REACTIONS (4)
  - FEELING HOT [None]
  - PHARMACEUTICAL PRODUCT COMPLAINT [None]
  - PROCEDURAL COMPLICATION [None]
  - SHOCK [None]
